FAERS Safety Report 11527309 (Version 2)
Quarter: 2015Q3

REPORT INFORMATION
  Report Type: Spontaneous
  Country: ZA (occurrence: ZA)
  Receive Date: 20150919
  Receipt Date: 20150923
  Transmission Date: 20151125
  Serious: No
  Sender: FDA-Public Use
  Company Number: ZA-009507513-1404ZAF004411

PATIENT
  Age: 78 Year
  Sex: Female
  Weight: 55 kg

DRUGS (6)
  1. AZILECT [Concomitant]
     Active Substance: RASAGILINE MESYLATE
     Indication: PARKINSON^S DISEASE
  2. SINEMET [Suspect]
     Active Substance: CARBIDOPA\LEVODOPA
     Dosage: 2 TABLETS 4X PER DAY
     Route: 048
  3. ELTROXIN [Concomitant]
     Active Substance: LEVOTHYROXINE
     Indication: HYPOTHYROIDISM
  4. SINEMET CR [Suspect]
     Active Substance: CARBIDOPA\LEVODOPA
     Dosage: 1 TABLET  AT NIGHT
     Route: 048
  5. SINEMET [Suspect]
     Active Substance: CARBIDOPA\LEVODOPA
     Dosage: 1 3/4 TABLETS  AT 5 AM, 1 3/4 TABLET AT 9 AM, 1 1/2 TABLET AT 1 PM
     Route: 048
     Dates: start: 20140404
  6. SINEMET [Suspect]
     Active Substance: CARBIDOPA\LEVODOPA
     Dosage: 1 TABLET 25/100MG FOUR TIMES A DAY
     Route: 048

REACTIONS (9)
  - Urinary anastomotic leak [Not Recovered/Not Resolved]
  - Pruritus [Not Recovered/Not Resolved]
  - Anxiety [Not Recovered/Not Resolved]
  - Prescribed overdose [Unknown]
  - Feeling abnormal [Unknown]
  - Abasia [Unknown]
  - Musculoskeletal stiffness [Unknown]
  - Confusional state [Unknown]
  - Insomnia [Unknown]
